FAERS Safety Report 5815605-0 (Version None)
Quarter: 2008Q3

REPORT INFORMATION
  Report Type: 
  Country: None (occurrence: None)
  Receive Date: 20080718
  Receipt Date: 20080707
  Transmission Date: 20090109
  Serious: Yes (Other)
  Sender: FDA-Public Use
  Company Number: NL-GENENTECH-264251

PATIENT
  Sex: Female
  Weight: 3.78 kg

DRUGS (4)
  1. MABTHERA [Suspect]
     Dosage: 375 MG/M2, X4W
     Route: 064
  2. PROSTAGLANDIN [Concomitant]
     Indication: INDUCED LABOUR
     Route: 064
  3. PROMETHAZINE [Concomitant]
     Indication: PAIN
     Route: 064
  4. MEPERIDINE HCL [Concomitant]
     Indication: PAIN
     Route: 064

REACTIONS (1)
  - LYMPHOPENIA [None]
